FAERS Safety Report 6432380-X (Version None)
Quarter: 2009Q4

REPORT INFORMATION
  Report Type: 
  Country: None (occurrence: None)
  Receive Date: 20091105
  Receipt Date: 20091026
  Transmission Date: 20100525
  Serious: Yes (Hospitalization, Other)
  Sender: FDA-Public Use
  Company Number: 2009SP017372

PATIENT
  Age: 53 Year
  Sex: Female
  Weight: 68.0396 kg

DRUGS (10)
  1. NUVARING [Suspect]
     Indication: HORMONE REPLACEMENT THERAPY
     Dosage: 1 DF;QM;VAG
     Route: 067
     Dates: start: 20030801, end: 20070101
  2. MOBIC (CON.) [Concomitant]
  3. SKELAXIN (CON.) [Concomitant]
  4. ALEVE (CON.) [Concomitant]
  5. AMBIEN CR (CON.) [Concomitant]
  6. ALLEGRA (CON.) [Concomitant]
  7. ZOLOFT (CON.) [Concomitant]
  8. EFFEXOR XR (CON.) [Concomitant]
  9. PREDNISONE 6 (CON.) [Concomitant]
  10. TRETINOIN (CON.) [Concomitant]

REACTIONS (11)
  - DIVERTICULUM INTESTINAL [None]
  - FOLLICULITIS [None]
  - HAEMATOCHEZIA [None]
  - HAEMORRHOIDS [None]
  - INTERVERTEBRAL DISC PROTRUSION [None]
  - NAUSEA [None]
  - PULMONARY EMBOLISM [None]
  - SKIN CANCER [None]
  - URINARY TRACT DISORDER [None]
  - VOMITING [None]
  - VULVAL DISORDER [None]
